FAERS Safety Report 8844865 (Version 1)
Quarter: 2012Q4

REPORT INFORMATION
  Report Type: 
  Country: TR (occurrence: TR)
  Receive Date: 20121017
  Receipt Date: 20121017
  Transmission Date: 20130627
  Serious: Yes (Other)
  Sender: FDA-Public Use
  Company Number: TR-ELI_LILLY_AND_COMPANY-TR201210002021

PATIENT
  Sex: Female

DRUGS (2)
  1. PROZAC [Suspect]
     Indication: ANXIETY
     Dosage: 20 mg, UNK
     Route: 048
     Dates: start: 20120105, end: 20120930
  2. YAZZ [Concomitant]

REACTIONS (2)
  - Hypothyroidism [Unknown]
  - Blood prolactin increased [Unknown]
